FAERS Safety Report 7418113-9 (Version None)
Quarter: 2011Q2

REPORT INFORMATION
  Report Type: 
  Country: None (occurrence: None)
  Receive Date: 20110415
  Receipt Date: 20110404
  Transmission Date: 20111010
  Serious: Yes (Hospitalization)
  Sender: FDA-Public Use
  Company Number: IT-TEVA-275477ISR

PATIENT
  Sex: Female

DRUGS (26)
  1. FOLIC ACID [Concomitant]
     Indication: BLOOD FOLATE DECREASED
     Dosage: 5 MILLIGRAM;
     Route: 048
     Dates: start: 20100721, end: 20101011
  2. ACICLOVIR [Concomitant]
     Dosage: 1600 MILLIGRAM;
     Route: 048
     Dates: start: 20101126, end: 20110119
  3. HEPARIN SODIUM [Concomitant]
     Indication: THROMBOSIS PROPHYLAXIS
     Dosage: 4000 IU (INTERNATIONAL UNIT);
     Route: 058
     Dates: start: 20100927, end: 20101028
  4. ALLOPURINOL [Concomitant]
     Dosage: 150 MILLIGRAM;
     Route: 048
     Dates: start: 20101020
  5. FLUCONAZOLE [Concomitant]
     Dosage: 200 MILLIGRAM;
     Route: 048
     Dates: start: 20101112, end: 20110119
  6. CETIRIZINE HYDROCHLORIDE [Concomitant]
     Dosage: 10 MILLIGRAM;
     Route: 048
     Dates: start: 20101118, end: 20101120
  7. DEXAMETHASONE [Suspect]
     Indication: MULTIPLE MYELOMA
     Dosage: 20 MILLIGRAM;
     Dates: start: 20100927, end: 20101011
  8. AMLODIPINE [Concomitant]
     Route: 048
     Dates: start: 20101217, end: 20110116
  9. ALLOPURINOL [Concomitant]
     Indication: PROPHYLAXIS
     Dosage: 300 MILLIGRAM;
     Route: 048
     Dates: start: 20050810, end: 20101011
  10. FENOFIBRATE [Concomitant]
     Indication: DYSLIPIDAEMIA
     Dosage: 200 MILLIGRAM;
     Route: 048
     Dates: start: 20050810, end: 20101011
  11. VALGANCICLOVIR HYDROCHLORIDE (VALCYTE) [Concomitant]
     Indication: CYTOMEGALOVIRUS INFECTION
     Dosage: 3600 MILLIGRAM;
     Route: 048
     Dates: start: 20101109, end: 20101111
  12. FLUCONAZOLE [Concomitant]
     Indication: ANTIFUNGAL PROPHYLAXIS
     Dosage: 200 MILLIGRAM;
     Route: 048
     Dates: start: 20100327, end: 20101011
  13. HEPARIN SODIUM [Concomitant]
     Dosage: 4000 IU (INTERNATIONAL UNIT);
     Route: 058
     Dates: start: 20101012, end: 20101019
  14. CETIRIZINE HYDROCHLORIDE [Concomitant]
     Indication: RASH
     Route: 048
     Dates: start: 20101004, end: 20101011
  15. AMLODIPINE [Concomitant]
     Indication: HYPERTENSION
     Dosage: 10 MILLIGRAM;
     Route: 048
     Dates: start: 20090915, end: 20101011
  16. ACICLOVIR [Concomitant]
     Indication: ANTIVIRAL PROPHYLAXIS
     Dosage: 1600 MILLIGRAM;
     Route: 048
     Dates: start: 20100927, end: 20101011
  17. HEPARIN SODIUM [Concomitant]
     Dosage: 8000 IU (INTERNATIONAL UNIT);
     Route: 058
     Dates: start: 20101020, end: 20101028
  18. FUROSEMIDE [Concomitant]
     Indication: PROPHYLAXIS
     Route: 042
     Dates: start: 20101017, end: 20101021
  19. AMOXICILLIN AND CLAVULANATE POTASSIUM [Concomitant]
     Indication: PYREXIA
     Dosage: 9 GRAM;
     Route: 048
     Dates: start: 20110104, end: 20110110
  20. LENALIDOMIDE (CC-5013) [Suspect]
     Dosage: 25 MILLIGRAM;
     Route: 048
     Dates: start: 20100927, end: 20101011
  21. AMOXICILLIN [Concomitant]
     Indication: ANTIBIOTIC PROPHYLAXIS
     Dosage: 9 MILLIGRAM;
     Route: 048
     Dates: start: 20101028, end: 20101120
  22. VALGANCICLOVIR HYDROCHLORIDE (VALCYTE) [Concomitant]
     Dosage: 1800 MILLIGRAM;
     Route: 048
     Dates: end: 20101126
  23. ESOMEPRAZOLE MAGNESIUM [Concomitant]
     Indication: PROPHYLAXIS
     Route: 048
     Dates: start: 20101012, end: 20101021
  24. SOTALOL HYDROCHLORIDE [Concomitant]
     Indication: PROPHYLAXIS
     Dosage: MAX 3X DAILY
     Route: 048
     Dates: start: 20101012, end: 20101013
  25. SOTALOL HYDROCHLORIDE [Concomitant]
     Dosage: MAX 3X DAILY
     Route: 048
     Dates: start: 20101014, end: 20101015
  26. AMOXICILLIN AND CLAVULANATE POTASSIUM [Concomitant]
     Dosage: 1800 MILLIGRAM;
     Route: 048
     Dates: end: 20101126

REACTIONS (5)
  - RENAL FAILURE [None]
  - CONFUSIONAL STATE [None]
  - ANAEMIA [None]
  - SEPSIS [None]
  - HEPATITIS ACUTE [None]
